FAERS Safety Report 8816693 (Version 1)
Quarter: 2012Q4

REPORT INFORMATION
  Report Type: Spontaneous
  Country: US (occurrence: None)
  Receive Date: 20120928
  Receipt Date: 20120928
  Transmission Date: 20130627
  Serious: Yes (Death)
  Sender: FDA-Public Use
  Company Number: FK201202793

PATIENT
  Age: 37 Year
  Sex: Male

DRUGS (1)
  1. BUPIVACAINE [Suspect]
     Indication: NERVE BLOCK

REACTIONS (10)
  - Toxicity to various agents [None]
  - Hypersensitivity [None]
  - Bradycardia [None]
  - Convulsion [None]
  - Cardiac arrest [None]
  - Cardiomegaly [None]
  - Arrhythmia [None]
  - Rash [None]
  - Laryngeal oedema [None]
  - Anaphylactic reaction [None]
